FAERS Safety Report 10196846 (Version 1)
Quarter: 2014Q2

REPORT INFORMATION
  Report Type: Spontaneous
  Country: TR (occurrence: TR)
  Receive Date: 20140527
  Receipt Date: 20140527
  Transmission Date: 20141212
  Serious: No
  Sender: FDA-Public Use
  Company Number: TR-SA-2014SA048592

PATIENT
  Sex: Female
  Weight: 60 kg

DRUGS (2)
  1. ARAVA [Suspect]
     Indication: RHEUMATOID ARTHRITIS
     Route: 048
     Dates: start: 201311, end: 20140301
  2. OMEPROL [Concomitant]
     Indication: GASTRITIS
     Route: 048
     Dates: start: 2004

REACTIONS (1)
  - Exposure during pregnancy [Unknown]
